FAERS Safety Report 18573504 (Version 1)
Quarter: 2020Q4

REPORT INFORMATION
  Report Type: Spontaneous
  Country: US (occurrence: US)
  Receive Date: 20201203
  Receipt Date: 20201203
  Transmission Date: 20210114
  Serious: No
  Sender: FDA-Public Use
  Company Number: US-JNJFOC-20201127655

PATIENT
  Age: 39 Year
  Sex: Male
  Weight: 79.45 kg

DRUGS (1)
  1. MENS ROGAINE EXTRA STRENGTH [Suspect]
     Active Substance: MINOXIDIL
     Indication: ALOPECIA
     Dosage: 1/2 A CAPFUL ( 1PUMP)
     Route: 061
     Dates: start: 20201103, end: 20201104

REACTIONS (1)
  - Application site ulcer [Recovered/Resolved]

NARRATIVE: CASE EVENT DATE: 20201105
